FAERS Safety Report 4304111-0 (Version None)
Quarter: 2004Q1

REPORT INFORMATION
  Report Type: 
  Country: None (occurrence: None)
  Receive Date: 20040224
  Receipt Date: 20040213
  Transmission Date: 20041129
  Serious: No
  Sender: FDA-Public Use
  Company Number: 04P-167-0250314-00

PATIENT
  Age: 31 Year
  Sex: Male

DRUGS (2)
  1. DEPAKOTE [Suspect]
     Indication: BIPOLAR DISORDER
     Dosage: 500 MG 2 IN 1 D, ORAL
     Route: 048
     Dates: start: 20030709, end: 20040114
  2. RISPERIDONE [Concomitant]

REACTIONS (1)
  - NEUTROPENIA [None]
